FAERS Safety Report 5936023-0 (Version None)
Quarter: 2008Q4

REPORT INFORMATION
  Report Type: 
  Country: None (occurrence: None)
  Receive Date: 20081029
  Receipt Date: 20081029
  Transmission Date: 20090506
  Serious: Yes (Life-Threatening, Other)
  Sender: FDA-Public Use
  Company Number: None

PATIENT
  Age: 56 Year
  Sex: Female
  Weight: 68.0396 kg

DRUGS (1)
  1. AMITIZA [Suspect]
     Indication: IRRITABLE BOWEL SYNDROME
     Dosage: 24 MCG PER DAY 1 OR 2 PER DAY PO
     Route: 048
     Dates: start: 20080715, end: 20080926

REACTIONS (17)
  - ANOREXIA [None]
  - ARTHRALGIA [None]
  - CHEST DISCOMFORT [None]
  - CHEST PAIN [None]
  - CHILLS [None]
  - DYSPNOEA [None]
  - FATIGUE [None]
  - HEADACHE [None]
  - HEART RATE INCREASED [None]
  - HYPERTENSION [None]
  - ILL-DEFINED DISORDER [None]
  - INSOMNIA [None]
  - MUSCLE TWITCHING [None]
  - NAUSEA [None]
  - PRURITUS [None]
  - PYREXIA [None]
  - WEIGHT DECREASED [None]
